FAERS Safety Report 19223857 (Version 1)
Quarter: 2021Q2

REPORT INFORMATION
  Report Type: Spontaneous
  Country: US (occurrence: US)
  Receive Date: 20210505
  Receipt Date: 20210505
  Transmission Date: 20210717
  Serious: No
  Sender: FDA-Public Use
  Company Number: US-ROCHE-2580003

PATIENT
  Sex: Male

DRUGS (10)
  1. FAMOTIDINE. [Concomitant]
     Active Substance: FAMOTIDINE
  2. METOPROLOL SUCCINATE ER [Concomitant]
     Active Substance: METOPROLOL SUCCINATE
  3. ASPIRIN 81 [Concomitant]
     Active Substance: ASPIRIN
  4. FENOFIBRATE. [Concomitant]
     Active Substance: FENOFIBRATE
  5. METFORMIN HYDROCHLORIDE. [Concomitant]
     Active Substance: METFORMIN HYDROCHLORIDE
     Dosage: ER
  6. ESBRIET [Suspect]
     Active Substance: PIRFENIDONE
     Indication: SLEEP APNOEA SYNDROME
     Dosage: 1 TABLET 3 TIMES A DAY (TID) FOR A WEEK THEN 2 TABLETS 3 TIMES A DAY FOR A WEEK, 3 TABLETS 3 TIMES D
     Route: 048
  7. LOSARTAN POTASSIUM. [Concomitant]
     Active Substance: LOSARTAN POTASSIUM
  8. ATORVASTATIN CALCIUM. [Concomitant]
     Active Substance: ATORVASTATIN CALCIUM
  9. HYDROCHLOROTHIAZIDE. [Concomitant]
     Active Substance: HYDROCHLOROTHIAZIDE
  10. ESBRIET [Suspect]
     Active Substance: PIRFENIDONE
     Indication: HYPOVENTILATION

REACTIONS (9)
  - Dizziness [Unknown]
  - Abdominal pain upper [Unknown]
  - Intentional product use issue [Unknown]
  - Rhinorrhoea [Unknown]
  - Fatigue [Unknown]
  - Hypoaesthesia [Unknown]
  - Off label use [Unknown]
  - Cough [Unknown]
  - Cough [Recovered/Resolved]
